FAERS Safety Report 12682798 (Version 3)
Quarter: 2016Q3

REPORT INFORMATION
  Report Type: Spontaneous
  Country: US (occurrence: None)
  Receive Date: 20160823
  Receipt Date: 20160914
  Transmission Date: 20161109
  Serious: Yes (Other)
  Sender: FDA-Public Use
  Company Number: ADE16

PATIENT
  Age: 79 Year
  Sex: Female

DRUGS (2)
  1. BEVACIZUMAB - PREFILLED SYRINGE BATCH B052116 [Suspect]
     Active Substance: BEVACIZUMAB
     Indication: NEOVASCULAR AGE-RELATED MACULAR DEGENERATION
     Dosage: 1.25MG/0.05ML IV
     Route: 042
     Dates: start: 20160706
  2. BEVACIZUMAB - PREFILLED SYRINGE BATCH B060316 [Suspect]
     Active Substance: BEVACIZUMAB
     Dosage: 1.25MG/0.05ML IV
     Route: 042
     Dates: start: 20160706

REACTIONS (2)
  - Visual acuity reduced transiently [None]
  - Endophthalmitis [None]

NARRATIVE: CASE EVENT DATE: 20160809
